FAERS Safety Report 23700743 (Version 3)
Quarter: 2024Q2

REPORT INFORMATION
  Report Type: Report from Study
  Country: IE (occurrence: IE)
  Receive Date: 20240403
  Receipt Date: 20240501
  Transmission Date: 20240716
  Serious: Yes (Hospitalization)
  Sender: FDA-Public Use
  Company Number: IE-002147023-NVSC2024IE067697

PATIENT
  Age: 47 Year
  Sex: Female
  Weight: 63.4 kg

DRUGS (7)
  1. ANASTROZOLE [Suspect]
     Active Substance: ANASTROZOLE
     Indication: HER2 negative breast cancer
     Dosage: 1 MG
     Route: 048
     Dates: start: 20201112
  2. GOSERELIN [Suspect]
     Active Substance: GOSERELIN
     Indication: HER2 negative breast cancer
     Dosage: 3.6 MG
     Route: 058
     Dates: start: 20201112, end: 20240229
  3. AMITRIPTYLINE [Concomitant]
     Active Substance: AMITRIPTYLINE
     Indication: Headache
     Dosage: 10 MG, NOCTE
     Route: 048
     Dates: start: 20221110
  4. BUTYLSCOPOLAMINE BROMIDE [Concomitant]
     Active Substance: BUTYLSCOPOLAMINE BROMIDE
     Indication: Abdominal pain
     Dosage: 10 MG, TDS/PRN
     Route: 048
     Dates: start: 20210722
  5. LEVOTHYROXINE [Concomitant]
     Active Substance: LEVOTHYROXINE\LEVOTHYROXINE SODIUM
     Indication: Hypothyroidism
     Dosage: 50 MG, QD
     Route: 048
     Dates: start: 20210825
  6. LACTULOSE [Concomitant]
     Active Substance: LACTULOSE
     Indication: Constipation
     Dosage: 15 ML, QD (PRN)
     Route: 048
     Dates: start: 20240401, end: 20240401
  7. LANSOPRAZOLE [Concomitant]
     Active Substance: LANSOPRAZOLE
     Indication: Gastrooesophageal reflux disease
     Dosage: 30 MG, QD
     Route: 048
     Dates: start: 20201126

REACTIONS (1)
  - Neurological symptom [Recovered/Resolved]

NARRATIVE: CASE EVENT DATE: 20240325
